FAERS Safety Report 9300495 (Version 1)
Quarter: 2012Q4

REPORT INFORMATION
  Report Type: Spontaneous
  Country: US (occurrence: None)
  Receive Date: 20121114
  Receipt Date: 20121114
  Transmission Date: 20130627
  Serious: Yes (Disabling, Other)
  Sender: FDA-Public Use
  Company Number: 2012MA009908

PATIENT
  Sex: Male
  Weight: 73.03 kg

DRUGS (56)
  1. METOCLOPRAMIDE TABLETS USP, 10 MG (PUREPAC) [Suspect]
     Indication: GERD
     Dosage: ;AC + HS
     Route: 048
     Dates: start: 20060118, end: 20060915
  2. FEXOFENADINE [Concomitant]
  3. MOBIC [Concomitant]
  4. HYDROCODONE/APAP [Concomitant]
  5. NEXIUM [Concomitant]
  6. ENULOSE [Concomitant]
  7. THYROID [Concomitant]
  8. PREDNISONE [Concomitant]
  9. ADVAIR [Concomitant]
  10. PLAVIX [Concomitant]
  11. CIPROFLOXACIN [Concomitant]
  12. LYRICA [Concomitant]
  13. ZELNORM [Concomitant]
  14. AMOXICILLIN [Concomitant]
  15. LIPITOR [Concomitant]
  16. SINGULAIR [Concomitant]
  17. DIOVAN [Concomitant]
  18. COMBIVENT [Concomitant]
  19. NASACORT [Concomitant]
  20. FORTEO [Concomitant]
  21. MEGESTROL [Concomitant]
  22. TRICOR [Concomitant]
  23. WARFARIN [Concomitant]
  24. TRAMADOL [Concomitant]
  25. METHYLPREDNISOLONE [Concomitant]
  26. LEVAQUIN [Concomitant]
  27. CLOPIDOGREL [Concomitant]
  28. FLOMAX [Concomitant]
  29. ASTELIN [Concomitant]
  30. BENZONATATE [Concomitant]
  31. AMITRIPTYLINE [Concomitant]
  32. NOVOLOG [Concomitant]
  33. SMZ/TMP DS 800-160 TAB (GENERIC) [Concomitant]
  34. NITROQUICK [Concomitant]
  35. CLINDAMYCIN [Concomitant]
  36. PRANDIN [Concomitant]
  37. BONIVA [Concomitant]
  38. RHINOCORT [Concomitant]
  39. CRESTOR [Concomitant]
  40. CARVEDILOL [Concomitant]
  41. ASTEPRO [Concomitant]
  42. METRONIDAZOLE [Concomitant]
  43. NIASPAN [Concomitant]
  44. CYMBALTA [Concomitant]
  45. FUROSEMIDE [Concomitant]
  46. POTASSIUM [Concomitant]
  47. DICYCLOMINE [Concomitant]
  48. PROPOXYPHENE/APAP [Concomitant]
  49. HYDROMET [Concomitant]
  50. TREXBROM [Concomitant]
  51. PROMETHAZINE [Concomitant]
  52. METAX [Concomitant]
  53. VITAMIN D [Concomitant]
  54. AZITHROMYCIN [Concomitant]
  55. METHOCARBAMOL [Concomitant]
  56. ALPRAZOLAM [Concomitant]

REACTIONS (35)
  - Incorrect drug administration duration [None]
  - Nervous system disorder [None]
  - Extrapyramidal disorder [None]
  - Tardive dyskinesia [None]
  - Multiple injuries [None]
  - Movement disorder [None]
  - Economic problem [None]
  - Impaired work ability [None]
  - Pain [None]
  - Emotional disorder [None]
  - Rhinitis allergic [None]
  - Dysphonia [None]
  - Cough [None]
  - Otitis media [None]
  - Sinusitis [None]
  - Aspiration [None]
  - Chronic obstructive pulmonary disease [None]
  - Herpes simplex [None]
  - Back pain [None]
  - Anxiety [None]
  - Dysphagia [None]
  - Diabetic neuropathy [None]
  - Oesophagitis [None]
  - Hypercholesterolaemia [None]
  - Asthma [None]
  - Cardiac murmur [None]
  - Diverticulum [None]
  - Septic shock [None]
  - Irritable bowel syndrome [None]
  - Coronary artery disease [None]
  - Benign prostatic hyperplasia [None]
  - Hypertension [None]
  - Hypothyroidism [None]
  - Diabetes mellitus [None]
  - Spinal fracture [None]
